FAERS Safety Report 8474467-6 (Version None)
Quarter: 2012Q2

REPORT INFORMATION
  Report Type: 
  Country: None (occurrence: None)
  Receive Date: 20120628
  Receipt Date: 20120625
  Transmission Date: 20120825
  Serious: Yes (Other)
  Sender: FDA-Public Use
  Company Number: PHHY2012NL054647

PATIENT
  Sex: Male

DRUGS (4)
  1. ZOMETA [Suspect]
     Indication: PROSTATE CANCER METASTATIC
     Dosage: 4MG/100 ML SOLUTION 1X PER 28 DAYS
  2. ZOMETA [Suspect]
     Dosage: 4MG/100 ML SOLUTION 1X PER 28 DAYS
     Dates: start: 20120229
  3. ZOMETA [Suspect]
     Dosage: 4MG/100 ML SOLUTION 1X PER 28 DAYS
     Dates: start: 20120529
  4. ZOMETA [Suspect]
     Dosage: 4MG/100 ML SOLUTION 1X PER 28 DAYS
     Dates: start: 20120426

REACTIONS (1)
  - GENERAL PHYSICAL HEALTH DETERIORATION [None]
